FAERS Safety Report 26072733 (Version 1)
Quarter: 2025Q4

REPORT INFORMATION
  Report Type: Spontaneous
  Country: US (occurrence: US)
  Receive Date: 20251121
  Receipt Date: 20251121
  Transmission Date: 20260117
  Serious: Yes (Other)
  Sender: The J.Molner Company
  Company Number: US-THE J. MOLNER COMPANY-202511000071

PATIENT
  Age: 75 Year
  Sex: Male

DRUGS (1)
  1. LIDOCAINE HYDROCHLORIDE [Suspect]
     Active Substance: LIDOCAINE HYDROCHLORIDE
     Indication: Product used for unknown indication
     Dosage: 0.07 MILLILITER, SINGLE

REACTIONS (5)
  - Intraocular pressure increased [Recovered/Resolved]
  - Visual acuity reduced [Recovered/Resolved]
  - Product confusion [Recovered/Resolved]
  - Wrong product administered [Recovered/Resolved]
  - Incorrect route of product administration [Recovered/Resolved]
